FAERS Safety Report 5579320-3 (Version None)
Quarter: 2007Q4

REPORT INFORMATION
  Report Type: 
  Country: None (occurrence: None)
  Receive Date: 20071130
  Receipt Date: 20070724
  Transmission Date: 20080405
  Serious: No
  Sender: FDA-Public Use
  Company Number: US200707005992

PATIENT
  Sex: Female
  Weight: 127.9 kg

DRUGS (5)
  1. BYETTA [Suspect]
     Indication: TYPE 2 DIABETES MELLITUS
     Dosage: 5 UG, 2/D SUBCUTANEOUS
     Route: 058
     Dates: start: 20070601
  2. ASPIRIN [Concomitant]
  3. PLAVIX [Concomitant]
  4. SINGULAIR [Concomitant]
  5. ALLEGRA D 24 HOUR [Concomitant]

REACTIONS (5)
  - DECREASED APPETITE [None]
  - DRY MOUTH [None]
  - INJECTION SITE DISCOMFORT [None]
  - INJECTION SITE HAEMORRHAGE [None]
  - WEIGHT DECREASED [None]
